FAERS Safety Report 16579608 (Version 1)
Quarter: 2019Q3

REPORT INFORMATION
  Report Type: Spontaneous
  Country: PL (occurrence: PL)
  Receive Date: 20190716
  Receipt Date: 20190716
  Transmission Date: 20191004
  Serious: Yes (Hospitalization)
  Sender: FDA-Public Use
  Company Number: PL-BAUSCH-BL-2019-019604

PATIENT
  Age: 70 Year
  Sex: Male
  Weight: 76 kg

DRUGS (9)
  1. DEXAMETHASONE. [Suspect]
     Active Substance: DEXAMETHASONE
     Indication: PLASMA CELL MYELOMA
     Route: 048
     Dates: start: 20190507, end: 20190608
  2. TRANSTEC [Concomitant]
     Active Substance: BUPRENORPHINE
     Indication: PAIN MANAGEMENT
     Dosage: FORM: PATCH
     Route: 062
     Dates: start: 2019
  3. LENALIDOMIDE [Suspect]
     Active Substance: LENALIDOMIDE
     Indication: PRODUCT USED FOR UNKNOWN INDICATION
     Route: 048
     Dates: start: 20190507, end: 20190610
  4. DARATUMUMAB [Suspect]
     Active Substance: DARATUMUMAB
     Indication: PRODUCT USED FOR UNKNOWN INDICATION
     Dosage: DOSE: 1 (UNIT UNSPECIFIED)
     Route: 058
     Dates: start: 20190507, end: 20190611
  5. CLEXANE [Concomitant]
     Active Substance: ENOXAPARIN SODIUM
     Indication: PULMONARY EMBOLISM
     Dosage: DOSE: 1 (UNIT UNSPECIFIED)
     Route: 058
     Dates: start: 20190616, end: 20190618
  6. CLEXANE [Concomitant]
     Active Substance: ENOXAPARIN SODIUM
     Dosage: DOSE: 2 (UNIT UNSPECIFIED)
     Route: 058
     Dates: start: 20190618
  7. MORPHINE [Concomitant]
     Active Substance: MORPHINE
     Indication: PULMONARY EMBOLISM
     Dosage: DOSE: 1 (UNIT UNSPECIFIED)
     Route: 058
     Dates: start: 20190510, end: 20190510
  8. VELCADE [Suspect]
     Active Substance: BORTEZOMIB
     Indication: PLASMA CELL MYELOMA
     Route: 058
     Dates: start: 20190507, end: 20190607
  9. ESTAZOLAM. [Concomitant]
     Active Substance: ESTAZOLAM
     Indication: SLEEP DISORDER THERAPY
     Route: 048
     Dates: start: 2019

REACTIONS (1)
  - Pulmonary embolism [Recovered/Resolved]

NARRATIVE: CASE EVENT DATE: 20190613
